FAERS Safety Report 7895008-8 (Version None)
Quarter: 2011Q4

REPORT INFORMATION
  Report Type: 
  Country: None (occurrence: None)
  Receive Date: 20111106
  Receipt Date: 20110822
  Transmission Date: 20120403
  Serious: No
  Sender: FDA-Public Use
  Company Number: US-AMGEN-USASP2011042907

PATIENT
  Age: 47 Year
  Sex: Female

DRUGS (3)
  1. HUMIRA [Concomitant]
  2. ENBREL [Suspect]
     Indication: PSORIATIC ARTHROPATHY
     Dosage: 25 MG, 2 TIMES/WK
     Dates: start: 20050101
  3. NAPROSYN [Concomitant]

REACTIONS (6)
  - GASTRIC ULCER [None]
  - PSORIATIC ARTHROPATHY [None]
  - INJECTION SITE WARMTH [None]
  - PAIN [None]
  - INJECTION SITE PAIN [None]
  - INJECTION SITE ERYTHEMA [None]
